FAERS Safety Report 11482803 (Version 1)
Quarter: 2015Q3

REPORT INFORMATION
  Report Type: Spontaneous
  Country: GB (occurrence: None)
  Receive Date: 20150908
  Receipt Date: 20150908
  Transmission Date: 20151125
  Serious: Yes (Other)
  Sender: FDA-Public Use
  Company Number: CC400269048

PATIENT
  Age: 37 Year
  Sex: Female

DRUGS (8)
  1. METRONIDAZOLE. [Suspect]
     Active Substance: METRONIDAZOLE
     Route: 042
  2. ONDANSETRON [Concomitant]
     Active Substance: ONDANSETRON
  3. CARBOPROST [Concomitant]
     Active Substance: CARBOPROST
  4. MISOPROSTOL. [Concomitant]
     Active Substance: MISOPROSTOL
  5. METRONIDAZOLE. [Concomitant]
     Active Substance: METRONIDAZOLE
  6. SYNTOMETRINE [Concomitant]
     Active Substance: ERGONOVINE\OXYTOCIN
  7. CEFUROXIME. [Concomitant]
     Active Substance: CEFUROXIME
  8. OXYTOCIN. [Concomitant]
     Active Substance: OXYTOCIN

REACTIONS (1)
  - Anaphylactic reaction [None]
